FAERS Safety Report 9168124 (Version 1)
Quarter: 2013Q1

REPORT INFORMATION
  Report Type: Spontaneous
  Country: JP (occurrence: JP)
  Receive Date: 20130318
  Receipt Date: 20130318
  Transmission Date: 20140127
  Serious: Yes (Other)
  Sender: FDA-Public Use
  Company Number: JP-ASTELLAS-2013JP003936

PATIENT
  Age: 81 Year
  Sex: Female

DRUGS (5)
  1. VESICARE [Suspect]
     Dosage: 5 MG, BID
     Route: 048
  2. STOMACH MEDICINE [Concomitant]
     Route: 065
  3. VITAMINS /90003601/ [Concomitant]
     Route: 065
  4. MEDICINE FOR BOWELS [Concomitant]
     Route: 065
  5. MEDICINE FOR LIVER [Concomitant]
     Route: 065

REACTIONS (3)
  - Intentional drug misuse [Unknown]
  - Hepatic cirrhosis [Unknown]
  - Constipation [Unknown]
